FAERS Safety Report 17555027 (Version 1)
Quarter: 2020Q1

REPORT INFORMATION
  Report Type: Spontaneous
  Country: US (occurrence: US)
  Receive Date: 20200309
  Receipt Date: 20200309
  Transmission Date: 20200409
  Serious: Yes (Disabling)
  Sender: FDA-Public Use
  Company Number: None

PATIENT
  Age: 61 Year
  Sex: Female
  Weight: 68.04 kg

DRUGS (1)
  1. IBANDRONATE SODIUM TABLETS 150MG [Suspect]
     Active Substance: IBANDRONATE SODIUM
     Dosage: ?          QUANTITY:1 PILL;?
     Route: 048
     Dates: start: 202002, end: 20200223

REACTIONS (4)
  - Gait disturbance [None]
  - Arthralgia [None]
  - Pain in extremity [None]
  - Musculoskeletal disorder [None]

NARRATIVE: CASE EVENT DATE: 20200204
